FAERS Safety Report 21587021 (Version 1)
Quarter: 2022Q4

REPORT INFORMATION
  Report Type: Report from Study
  Country: US (occurrence: US)
  Receive Date: 20221113
  Receipt Date: 20221113
  Transmission Date: 20230112
  Serious: Yes (Other)
  Sender: FDA-Public Use
  Company Number: US-BRISTOL-MYERS SQUIBB COMPANY-2022-134802

PATIENT
  Age: 77 Year
  Sex: Female
  Weight: 108.86 kg

DRUGS (2)
  1. ELIQUIS [Suspect]
     Active Substance: APIXABAN
     Indication: Cerebrovascular accident prophylaxis
     Route: 048
  2. ROSUVASTATIN [Concomitant]
     Active Substance: ROSUVASTATIN
     Indication: Product used for unknown indication
     Route: 065

REACTIONS (7)
  - Balance disorder [Unknown]
  - Diplopia [Unknown]
  - Renal impairment [Unknown]
  - Functional gastrointestinal disorder [Unknown]
  - Confusional state [Recovering/Resolving]
  - Disorientation [Recovering/Resolving]
  - Delirium [Recovering/Resolving]
